FAERS Safety Report 12660135 (Version 1)
Quarter: 2016Q3

REPORT INFORMATION
  Report Type: Report from Study
  Country: US (occurrence: US)
  Receive Date: 20160817
  Receipt Date: 20160817
  Transmission Date: 20161109
  Serious: Yes (Hospitalization, Other)
  Sender: FDA-Public Use
  Company Number: US-BAYER-2016-155634

PATIENT
  Sex: Female

DRUGS (2)
  1. BETASERON [Suspect]
     Active Substance: INTERFERON BETA-1B
     Indication: MULTIPLE SCLEROSIS
     Dosage: 0.25 MG, QOD
     Route: 058
     Dates: start: 201207
  2. ALEVE [Concomitant]
     Active Substance: NAPROXEN SODIUM
     Indication: PROPHYLAXIS

REACTIONS (4)
  - Somnolence [None]
  - Seizure [None]
  - Drug dose omission [None]
  - Influenza like illness [None]

NARRATIVE: CASE EVENT DATE: 2014
